FAERS Safety Report 7600032-6 (Version None)
Quarter: 2011Q3

REPORT INFORMATION
  Report Type: 
  Country: None (occurrence: None)
  Receive Date: 20110711
  Receipt Date: 20110704
  Transmission Date: 20111222
  Serious: Yes (Disabling)
  Sender: FDA-Public Use
  Company Number: DE-JNJFOC-20090606217

PATIENT
  Age: 39 Year
  Sex: Male

DRUGS (4)
  1. LEVOFLOXACIN [Suspect]
     Indication: CHLAMYDIAL INFECTION
     Route: 048
     Dates: start: 20080801, end: 20080801
  2. LEVOFLOXACIN [Suspect]
     Indication: PROSTATITIS
     Route: 048
     Dates: start: 20080801, end: 20080801
  3. LEVOFLOXACIN [Suspect]
     Indication: GENITOURINARY TRACT INFECTION
     Route: 048
     Dates: start: 20080801, end: 20080801
  4. LEVOFLOXACIN [Suspect]
     Indication: UROGENITAL DISORDER
     Route: 048
     Dates: start: 20080801, end: 20080801

REACTIONS (6)
  - ARTHRALGIA [None]
  - MUSCLE SPASMS [None]
  - TENOSYNOVITIS [None]
  - TENDONITIS [None]
  - BURNING SENSATION [None]
  - TENDON PAIN [None]
